FAERS Safety Report 4662802-6 (Version None)
Quarter: 2005Q2

REPORT INFORMATION
  Report Type: 
  Country: None (occurrence: None)
  Receive Date: 20050512
  Receipt Date: 20050425
  Transmission Date: 20051028
  Serious: Yes (Hospitalization, Other)
  Sender: FDA-Public Use
  Company Number: JP_050306162

PATIENT
  Age: 20 Year
  Sex: Female

DRUGS (13)
  1. ZYPREXA [Suspect]
     Indication: ANXIETY
     Dosage: 25 MG DAY
     Dates: start: 20040304, end: 20040901
  2. ZYPREXA [Suspect]
     Indication: BORDERLINE PERSONALITY DISORDER
     Dosage: 25 MG DAY
     Dates: start: 20040304, end: 20040901
  3. PANTOSIN (PANTETHINE) [Concomitant]
  4. MAGNESIUM OXIDE [Concomitant]
  5. SENNOSIDE (SENNOSIDE A+B CALCIUM) [Concomitant]
  6. PAXIL [Concomitant]
  7. MARZULENE S [Concomitant]
  8. DEPAKENE-R  /JPN/(VALPROATE SODIUM) [Concomitant]
  9. TRAZODONE HCL [Concomitant]
  10. VALPROATE SODIUM [Concomitant]
  11. RISPERDAL [Concomitant]
  12. HIBERNA (PROMETHAZINE HYDROCHLORIDE) [Concomitant]
  13. FLUVOXAMINE MALEATE [Concomitant]

REACTIONS (7)
  - DEPRESSIVE SYMPTOM [None]
  - ELECTROENCEPHALOGRAM ABNORMAL [None]
  - INSOMNIA [None]
  - IRRITABILITY [None]
  - NIGHTMARE [None]
  - PETIT MAL EPILEPSY [None]
  - PSYCHIATRIC SYMPTOM [None]
